FAERS Safety Report 23108702 (Version 1)
Quarter: 2023Q4

REPORT INFORMATION
  Report Type: Other
  Country: BE (occurrence: None)
  Receive Date: 20231026
  Receipt Date: 20231026
  Transmission Date: 20240109
  Serious: Yes (Other)
  Sender: FDA-Public Use
  Company Number: BE-ROCHE-3441021

PATIENT

DRUGS (4)
  1. ATEZOLIZUMAB [Suspect]
     Active Substance: ATEZOLIZUMAB
     Indication: Neoplasm
     Route: 042
  2. NIVOLUMAB [Suspect]
     Active Substance: NIVOLUMAB
     Indication: Neoplasm
     Route: 042
  3. NIVOLUMAB [Suspect]
     Active Substance: NIVOLUMAB
     Route: 042
  4. PEMBROLIZUMAB [Suspect]
     Active Substance: PEMBROLIZUMAB
     Indication: Neoplasm
     Route: 042

REACTIONS (31)
  - Decreased appetite [Unknown]
  - Dyspnoea [Unknown]
  - Diarrhoea [Unknown]
  - Rash [Unknown]
  - Dysphagia [Unknown]
  - Pneumonitis [Unknown]
  - Sarcoidosis [Unknown]
  - Acute kidney injury [Unknown]
  - Hiccups [Unknown]
  - Stevens-Johnson syndrome [Unknown]
  - Colitis [Unknown]
  - Fatigue [Unknown]
  - Insomnia [Unknown]
  - Vomiting [Unknown]
  - Oedema [Unknown]
  - Anaemia [Unknown]
  - Blood creatinine increased [Unknown]
  - Gamma-glutamyltransferase increased [Unknown]
  - Blood alkaline phosphatase increased [Unknown]
  - Pruritus [Unknown]
  - Cough [Unknown]
  - Constipation [Unknown]
  - Dry mouth [Unknown]
  - Nausea [Unknown]
  - Dysgeusia [Unknown]
  - Dyspepsia [Unknown]
  - Hyponatraemia [Unknown]
  - Hyperkalaemia [Unknown]
  - Blood lactate dehydrogenase increased [Unknown]
  - Aspartate aminotransferase increased [Unknown]
  - Alanine aminotransferase increased [Unknown]
